FAERS Safety Report 4629027-1 (Version None)
Quarter: 2005Q2

REPORT INFORMATION
  Report Type: 
  Country: None (occurrence: None)
  Receive Date: 20050407
  Receipt Date: 20050404
  Transmission Date: 20051028
  Serious: No
  Sender: FDA-Public Use
  Company Number: JP-BOEHRINGER INGELHEIM PHARMACEUTICALS, INC.-2005-BP-05445RO

PATIENT
  Sex: Male

DRUGS (5)
  1. LEUCOVORIN CALCIUM [Suspect]
     Indication: RECTAL CANCER
     Dosage: 75 MG/DAY
     Route: 048
     Dates: start: 20040902, end: 20040909
  2. LEUCOVORIN CALCIUM [Suspect]
     Route: 048
     Dates: start: 20041020
  3. UFT [Suspect]
     Indication: RECTAL CANCER
     Dosage: 4 CAPSULES/DAY
     Route: 048
     Dates: start: 20040902, end: 20040909
  4. UFT [Suspect]
     Dosage: 4 CAPSULES DAILY
     Route: 048
     Dates: start: 20041020
  5. MAGNESIUM OXIDE [Concomitant]
     Dates: start: 20040902

REACTIONS (3)
  - ANOREXIA [None]
  - HAEMOGLOBIN DECREASED [None]
  - STOMATITIS [None]
